FAERS Safety Report 16118611 (Version 1)
Quarter: 2019Q1

REPORT INFORMATION
  Report Type: Spontaneous
  Country: US (occurrence: US)
  Receive Date: 20190326
  Receipt Date: 20190326
  Transmission Date: 20190418
  Serious: No
  Sender: FDA-Public Use
  Company Number: US-PERRIGO-19US000238

PATIENT
  Age: 72 Year
  Sex: Female
  Weight: 58.96 kg

DRUGS (2)
  1. GUAIFENESIN-DEXTROMETHORPHAN HYDROBROMIDE [Suspect]
     Active Substance: DEXTROMETHORPHAN HYDROBROMIDE\GUAIFENESIN
     Indication: HYPERSENSITIVITY
     Dosage: 1 TABLETS, SINGLE
     Route: 048
     Dates: start: 20190105, end: 20190105
  2. GUAIFENESIN-DEXTROMETHORPHAN HYDROBROMIDE [Suspect]
     Active Substance: DEXTROMETHORPHAN HYDROBROMIDE\GUAIFENESIN
     Indication: NASOPHARYNGITIS

REACTIONS (3)
  - Feeling of body temperature change [Recovered/Resolved]
  - Headache [Recovered/Resolved]
  - Nervousness [Recovered/Resolved]

NARRATIVE: CASE EVENT DATE: 20190105
